FAERS Safety Report 12350494 (Version 2)
Quarter: 2016Q2

REPORT INFORMATION
  Report Type: Spontaneous
  Country: US (occurrence: US)
  Receive Date: 20160510
  Receipt Date: 20160525
  Transmission Date: 20160815
  Serious: Yes (Death, Hospitalization, Other)
  Sender: FDA-Public Use
  Company Number: US-ROCHE-1751081

PATIENT
  Age: 55 Year
  Sex: Male

DRUGS (8)
  1. ABT-199 (SELECTIVE BCL-2 INHIBITOR) [Suspect]
     Active Substance: VENETOCLAX
     Route: 048
     Dates: start: 20121211
  2. RITUXAN [Suspect]
     Active Substance: RITUXIMAB
     Route: 042
     Dates: start: 201202, end: 201207
  3. FLUDARABINE [Concomitant]
     Active Substance: FLUDARABINE PHOSPHATE
  4. TREANDA [Concomitant]
     Active Substance: BENDAMUSTINE HYDROCHLORIDE
  5. ABT-199 (SELECTIVE BCL-2 INHIBITOR) [Suspect]
     Active Substance: VENETOCLAX
     Indication: CHRONIC LYMPHOCYTIC LEUKAEMIA REFRACTORY
     Dosage: CYCLE
     Route: 048
     Dates: start: 20121119
  6. RITUXAN [Suspect]
     Active Substance: RITUXIMAB
     Indication: CHRONIC LYMPHOCYTIC LEUKAEMIA REFRACTORY
     Route: 042
     Dates: start: 20091016, end: 20100209
  7. ABT-199 (SELECTIVE BCL-2 INHIBITOR) [Suspect]
     Active Substance: VENETOCLAX
     Route: 048
     Dates: start: 20121204
  8. CYCLOPHOSPHAMIDE. [Concomitant]
     Active Substance: CYCLOPHOSPHAMIDE

REACTIONS (18)
  - Pneumonia [Unknown]
  - Ascites [Unknown]
  - Dehydration [Unknown]
  - Fatigue [Unknown]
  - Renal failure [Fatal]
  - Sepsis [Unknown]
  - Diarrhoea [Unknown]
  - Pleural effusion [Unknown]
  - Neutropenia [Unknown]
  - Thrombocytopenia [Unknown]
  - Infusion related reaction [Unknown]
  - Asthenia [Unknown]
  - Tumour lysis syndrome [Unknown]
  - Tachycardia [Unknown]
  - Vomiting [Unknown]
  - Pyrexia [Unknown]
  - Nausea [Unknown]
  - Chills [Unknown]

NARRATIVE: CASE EVENT DATE: 20121213
